FAERS Safety Report 4523329-5 (Version None)
Quarter: 2004Q4

REPORT INFORMATION
  Report Type: 
  Country: None (occurrence: None)
  Receive Date: 20041208
  Receipt Date: 20041129
  Transmission Date: 20050328
  Serious: Yes (Death)
  Sender: FDA-Public Use
  Company Number: 2004-11-1819

PATIENT

DRUGS (1)
  1. NITRO-DUR [Suspect]
     Dosage: TRANSDERMAL
     Route: 062

REACTIONS (1)
  - DEATH [None]
